FAERS Safety Report 23678593 (Version 1)
Quarter: 2024Q1

REPORT INFORMATION
  Report Type: Spontaneous
  Country: NZ (occurrence: NZ)
  Receive Date: 20240327
  Receipt Date: 20240327
  Transmission Date: 20240410
  Serious: Yes (Hospitalization)
  Sender: FDA-Public Use
  Company Number: NZ-MYLANLABS-2024M1028036

PATIENT
  Sex: Female

DRUGS (2)
  1. CLOZARIL [Suspect]
     Active Substance: CLOZAPINE
     Indication: Schizophrenia
     Dosage: 62.5 MILLIGRAM, QD (DAILY)
     Route: 048
     Dates: start: 20210323
  2. CLOZARIL [Suspect]
     Active Substance: CLOZAPINE
     Dosage: 50 MILLIGRAM, QD (ON DISCHARGE)
     Route: 048
     Dates: start: 20240321

REACTIONS (4)
  - COVID-19 [Unknown]
  - Acute kidney injury [Unknown]
  - Delirium [Unknown]
  - Somnolence [Unknown]
